FAERS Safety Report 18255162 (Version 2)
Quarter: 2020Q3

REPORT INFORMATION
  Report Type: Spontaneous
  Country: US (occurrence: US)
  Receive Date: 20200911
  Receipt Date: 20200916
  Transmission Date: 20201103
  Serious: No
  Sender: FDA-Public Use
  Company Number: US-ASTRAZENECA-2020SF10939

PATIENT
  Sex: Female
  Weight: 76.1 kg

DRUGS (1)
  1. BYDUREON BCISE [Suspect]
     Active Substance: EXENATIDE
     Indication: DIABETES MELLITUS
     Route: 058
     Dates: start: 202002

REACTIONS (5)
  - Device use error [Unknown]
  - Intentional product misuse [Recovered/Resolved]
  - Device issue [Unknown]
  - Device leakage [Unknown]
  - Body height decreased [Unknown]
